FAERS Safety Report 11080232 (Version 1)
Quarter: 2015Q2

REPORT INFORMATION
  Report Type: Spontaneous
  Country: US (occurrence: US)
  Receive Date: 20150430
  Receipt Date: 20150430
  Transmission Date: 20150821
  Serious: Yes (Congenital Anomaly)
  Sender: FDA-Public Use
  Company Number: US-ELI_LILLY_AND_COMPANY-US201504007918

PATIENT

DRUGS (1)
  1. PROZAC [Suspect]
     Active Substance: FLUOXETINE HYDROCHLORIDE
     Indication: PRODUCT USED FOR UNKNOWN INDICATION
     Route: 064

REACTIONS (2)
  - Foetal exposure during pregnancy [Recovered/Resolved]
  - Congenital cardiovascular anomaly [Unknown]
